FAERS Safety Report 15705028 (Version 2)
Quarter: 2020Q1

REPORT INFORMATION
  Report Type: Spontaneous
  Country: US (occurrence: US)
  Receive Date: 20181210
  Receipt Date: 20200121
  Transmission Date: 20200409
  Serious: Yes (Other)
  Sender: FDA-Public Use
  Company Number: US-SA-2018SA332995

PATIENT
  Age: 55 Year
  Sex: Male

DRUGS (2)
  1. KEVZARA [Suspect]
     Active Substance: SARILUMAB
     Dosage: 200 MG (FREQUENCY: OTHER)
     Route: 058
     Dates: start: 201812, end: 201912
  2. KEVZARA [Suspect]
     Active Substance: SARILUMAB
     Indication: RHEUMATOID ARTHRITIS
     Dosage: UNK (STRENGTH 200 MG/1.14 ML)
     Route: 058
     Dates: start: 201809, end: 2018

REACTIONS (5)
  - Vision blurred [Unknown]
  - Bacterial infection [Unknown]
  - Arthralgia [Unknown]
  - Groin abscess [Unknown]
  - Back pain [Unknown]

NARRATIVE: CASE EVENT DATE: 2018
